FAERS Safety Report 8284479-3 (Version None)
Quarter: 2012Q2

REPORT INFORMATION
  Report Type: 
  Country: None (occurrence: None)
  Receive Date: 20120413
  Receipt Date: 20111229
  Transmission Date: 20120825
  Serious: No
  Sender: FDA-Public Use
  Company Number: US-ASTRAZENECA-2011SE76672

PATIENT
  Age: 47 Year
  Sex: Male

DRUGS (6)
  1. PRILOSEC [Suspect]
     Dosage: TWO TIMES A DAY
     Route: 048
  2. NEXIUM [Suspect]
     Dosage: SOME TIMES TAKE 2 CAPSULE DAILY
     Route: 048
  3. CALCIUM CARBONATE [Concomitant]
  4. NEXIUM [Suspect]
     Route: 048
  5. TAGAMENT [Concomitant]
  6. NEXIUM [Suspect]
     Route: 048

REACTIONS (2)
  - DRUG INEFFECTIVE [None]
  - INAPPROPRIATE SCHEDULE OF DRUG ADMINISTRATION [None]
